FAERS Safety Report 9296832 (Version 2)
Quarter: 2013Q3

REPORT INFORMATION
  Report Type: Spontaneous
  Country: US (occurrence: US)
  Receive Date: 20130517
  Receipt Date: 20130705
  Transmission Date: 20140515
  Serious: No
  Sender: FDA-Public Use
  Company Number: US-ASTRAZENECA-2013SE30703

PATIENT
  Age: 76 Year
  Sex: Male
  Weight: 63 kg

DRUGS (8)
  1. SYMBICORT [Suspect]
     Indication: DYSPNOEA
     Dosage: 160/4.5 MCG 2 PUFFS BID
     Route: 055
     Dates: start: 201301
  2. NAMENDA [Concomitant]
     Indication: DEMENTIA
     Route: 048
     Dates: start: 2006
  3. DONEPEZIL [Concomitant]
     Indication: DEMENTIA
     Route: 048
     Dates: start: 2006
  4. SIMVASTATIN [Concomitant]
     Indication: BLOOD CHOLESTEROL INCREASED
     Route: 048
     Dates: start: 2012
  5. PHENYTOIN [Concomitant]
     Indication: CONVULSION
     Route: 048
     Dates: start: 2004
  6. PHENYTOIN [Concomitant]
     Indication: CONVULSION
     Route: 048
     Dates: start: 2004
  7. CLOPIDOGREL [Concomitant]
     Indication: ANTICOAGULANT THERAPY
     Route: 048
     Dates: start: 2004
  8. VENTOLIN [Concomitant]
     Indication: DYSPNOEA
     Route: 055

REACTIONS (5)
  - Lung disorder [Unknown]
  - Chronic obstructive pulmonary disease [Unknown]
  - Dyspnoea [Unknown]
  - Intentional drug misuse [Unknown]
  - Off label use [Unknown]
